FAERS Safety Report 25282263 (Version 1)
Quarter: 2025Q2

REPORT INFORMATION
  Report Type: Spontaneous
  Country: FR (occurrence: FR)
  Receive Date: 20250508
  Receipt Date: 20250508
  Transmission Date: 20250716
  Serious: Yes (Life-Threatening, Hospitalization)
  Sender: MYLAN
  Company Number: FR-MYLANLABS-2025M1038258

PATIENT
  Age: 83 Year
  Sex: Male

DRUGS (12)
  1. NOREPINEPHRINE [Suspect]
     Active Substance: NOREPINEPHRINE
     Indication: Haemodynamic instability
  2. NOREPINEPHRINE [Suspect]
     Active Substance: NOREPINEPHRINE
     Route: 065
  3. NOREPINEPHRINE [Suspect]
     Active Substance: NOREPINEPHRINE
     Route: 065
  4. NOREPINEPHRINE [Suspect]
     Active Substance: NOREPINEPHRINE
  5. APIXABAN [Concomitant]
     Active Substance: APIXABAN
     Indication: Atrial fibrillation
  6. APIXABAN [Concomitant]
     Active Substance: APIXABAN
     Route: 065
  7. APIXABAN [Concomitant]
     Active Substance: APIXABAN
     Route: 065
  8. APIXABAN [Concomitant]
     Active Substance: APIXABAN
  9. PROTHROMBIN COMPLEX CONCENTRATE [Concomitant]
     Active Substance: COAGULATION FACTOR IX HUMAN\COAGULATION FACTOR VII HUMAN\COAGULATION FACTOR X HUMAN\PROTEIN C\PROTEI
     Indication: Procoagulant therapy
  10. PROTHROMBIN COMPLEX CONCENTRATE [Concomitant]
     Active Substance: COAGULATION FACTOR IX HUMAN\COAGULATION FACTOR VII HUMAN\COAGULATION FACTOR X HUMAN\PROTEIN C\PROTEI
     Route: 065
  11. PROTHROMBIN COMPLEX CONCENTRATE [Concomitant]
     Active Substance: COAGULATION FACTOR IX HUMAN\COAGULATION FACTOR VII HUMAN\COAGULATION FACTOR X HUMAN\PROTEIN C\PROTEI
     Route: 065
  12. PROTHROMBIN COMPLEX CONCENTRATE [Concomitant]
     Active Substance: COAGULATION FACTOR IX HUMAN\COAGULATION FACTOR VII HUMAN\COAGULATION FACTOR X HUMAN\PROTEIN C\PROTEI

REACTIONS (1)
  - Drug ineffective [Unknown]
